FAERS Safety Report 13818844 (Version 1)
Quarter: 2017Q3

REPORT INFORMATION
  Report Type: Report from Study
  Country: US (occurrence: US)
  Receive Date: 20170731
  Receipt Date: 20170731
  Transmission Date: 20171127
  Serious: No
  Sender: FDA-Public Use
  Company Number: US-EXELIXIS-CABO-17008970

PATIENT
  Sex: Male

DRUGS (6)
  1. CABOMETYX [Suspect]
     Active Substance: CABOZANTINIB S-MALATE
     Indication: MALIGNANT MELANOMA
     Dosage: 60 MG, QD
     Route: 048
     Dates: start: 20170331
  2. CABOMETYX [Suspect]
     Active Substance: CABOZANTINIB S-MALATE
     Indication: RENAL CANCER
  3. CABOMETYX [Suspect]
     Active Substance: CABOZANTINIB S-MALATE
     Indication: BONE CANCER
  4. CALCIUM [Concomitant]
     Active Substance: CALCIUM
  5. CABOMETYX [Suspect]
     Active Substance: CABOZANTINIB S-MALATE
     Indication: NEOPLASM MALIGNANT
  6. THYROID [Concomitant]
     Active Substance: LEVOTHYROXINE\LIOTHYRONINE

REACTIONS (8)
  - Fatigue [Unknown]
  - Dysphonia [Unknown]
  - Somnolence [Unknown]
  - Nausea [Unknown]
  - Chromaturia [Unknown]
  - Vomiting [Unknown]
  - Malaise [Unknown]
  - Decreased appetite [Unknown]
